FAERS Safety Report 13294272 (Version 6)
Quarter: 2020Q2

REPORT INFORMATION
  Report Type: Spontaneous
  Country: US (occurrence: US)
  Receive Date: 20170303
  Receipt Date: 20200529
  Transmission Date: 20200713
  Serious: Yes (Hospitalization, Other)
  Sender: FDA-Public Use
  Company Number: US-BIOMARINAP-US-2017-113043

PATIENT
  Age: 11 Month
  Sex: Male

DRUGS (2)
  1. ALDURAZYME [Suspect]
     Active Substance: LARONIDASE
     Indication: MUCOPOLYSACCHARIDOSIS I
     Dosage: UNK
     Route: 041
     Dates: start: 20170206, end: 20170222
  2. ALDURAZYME [Suspect]
     Active Substance: LARONIDASE
     Dosage: 8.7 MILLIGRAM, QW
     Route: 041
     Dates: start: 20170222, end: 20171024

REACTIONS (10)
  - Gastroenteritis viral [Recovering/Resolving]
  - Mucosal inflammation [Unknown]
  - Pneumonia [Recovering/Resolving]
  - Respiratory tract infection [Recovering/Resolving]
  - Pyrexia [Recovering/Resolving]
  - Ear infection [Recovering/Resolving]
  - Influenza [Recovering/Resolving]
  - Transplant rejection [Recovering/Resolving]
  - Transplant failure [Unknown]
  - Bone marrow failure [Recovered/Resolved]

NARRATIVE: CASE EVENT DATE: 2017
